FAERS Safety Report 4352206-8 (Version None)
Quarter: 2004Q2

REPORT INFORMATION
  Report Type: 
  Country: None (occurrence: None)
  Receive Date: 20040428
  Receipt Date: 20040419
  Transmission Date: 20050107
  Serious: Yes (Death)
  Sender: FDA-Public Use
  Company Number: 2004210218JP

PATIENT
  Age: 78 Year
  Sex: Female

DRUGS (1)
  1. AZULFIDINE EN-TABS [Suspect]
     Indication: RHEUMATOID ARTHRITIS
     Dosage: 1G/DAY, ORAL
     Route: 048
     Dates: start: 20040301, end: 20040401

REACTIONS (2)
  - AGRANULOCYTOSIS [None]
  - PNEUMONIA [None]
